FAERS Safety Report 17391111 (Version 1)
Quarter: 2020Q1

REPORT INFORMATION
  Report Type: Spontaneous
  Country: ES (occurrence: ES)
  Receive Date: 20200207
  Receipt Date: 20200207
  Transmission Date: 20200409
  Serious: Yes (Other)
  Sender: FDA-Public Use
  Company Number: ES-PFIZER INC-2020051403

PATIENT
  Age: 50 Year
  Sex: Female

DRUGS (7)
  1. GEMCITABINE HYDROCHLORIDE. [Suspect]
     Active Substance: GEMCITABINE HYDROCHLORIDE
     Indication: INFLAMMATORY CARCINOMA OF THE BREAST
     Dosage: 1000 MG, EVERY 3 WEEKS CYCLIC (EVERY 21 DAYS)
     Dates: start: 201301, end: 201309
  2. VINORELBINE [Suspect]
     Active Substance: VINORELBINE TARTRATE
     Indication: INFLAMMATORY CARCINOMA OF THE BREAST
     Dosage: UNK
  3. PACLITAXEL. [Concomitant]
     Active Substance: PACLITAXEL
     Dosage: 90 MG/M2, WEEKLY
     Dates: start: 19990702
  4. TAMOXIFEN [Concomitant]
     Active Substance: TAMOXIFEN
     Dosage: UNK
  5. TAXOTERE [Concomitant]
     Active Substance: DOCETAXEL
     Dosage: 85 MG/M2, UNK
     Dates: start: 19981006
  6. HERCEPTIN [Suspect]
     Active Substance: TRASTUZUMAB
     Indication: INFLAMMATORY CARCINOMA OF THE BREAST
     Dosage: 1 UNK, EVERY 3 WEEKS
  7. XELODA [Suspect]
     Active Substance: CAPECITABINE
     Indication: INFLAMMATORY CARCINOMA OF THE BREAST
     Dosage: 1000 MG, 2X/DAY (EVERY 12 HOURS)
     Dates: start: 200508

REACTIONS (5)
  - Discomfort [Unknown]
  - Palmar-plantar erythrodysaesthesia syndrome [Unknown]
  - Asthenia [Unknown]
  - Depression [Unknown]
  - Lymphoedema [Unknown]

NARRATIVE: CASE EVENT DATE: 201309
